FAERS Safety Report 7300999-X (Version None)
Quarter: 2010Q4

REPORT INFORMATION
  Report Type: 
  Country: None (occurrence: None)
  Receive Date: 20101230
  Receipt Date: 20100329
  Transmission Date: 20110411
  Serious: Yes (Other)
  Sender: FDA-Public Use
  Company Number: 20100146

PATIENT
  Age: 70 Year
  Sex: Female
  Weight: 87.0906 kg

DRUGS (1)
  1. VENOFER [Suspect]
     Indication: RENAL FAILURE CHRONIC
     Dosage: 200 MG INTRAVENOUS BOLUS
     Route: 040
     Dates: start: 20090811, end: 20090811

REACTIONS (2)
  - HYPERSENSITIVITY [None]
  - INJECTION SITE PAIN [None]
